FAERS Safety Report 9058317 (Version 2)
Quarter: 2013Q1

REPORT INFORMATION
  Report Type: Spontaneous
  Country: FR (occurrence: FR)
  Receive Date: 20130211
  Receipt Date: 20130308
  Transmission Date: 20140127
  Serious: Yes (Hospitalization)
  Sender: FDA-Public Use
  Company Number: FR-JNJFOC-20130201073

PATIENT
  Age: 82 None
  Sex: Female

DRUGS (8)
  1. IXPRIM [Suspect]
     Indication: PAIN IN EXTREMITY
     Route: 048
     Dates: start: 20121207, end: 20121212
  2. LAROXYL [Concomitant]
     Indication: PRODUCT USED FOR UNKNOWN INDICATION
     Route: 048
     Dates: start: 20121207, end: 20121212
  3. AMLOR [Concomitant]
     Indication: HYPERTENSIVE CRISIS
     Route: 048
     Dates: start: 20121207
  4. RIVOTRIL [Concomitant]
     Indication: PRODUCT USED FOR UNKNOWN INDICATION
     Route: 048
     Dates: end: 20121207
  5. NEURONTIN [Concomitant]
     Indication: PAIN IN EXTREMITY
     Route: 048
  6. PROZAC [Concomitant]
     Indication: PRODUCT USED FOR UNKNOWN INDICATION
     Route: 048
  7. MODOPAR [Concomitant]
     Indication: PRODUCT USED FOR UNKNOWN INDICATION
     Route: 048
  8. MODOPAR [Concomitant]
     Indication: PRODUCT USED FOR UNKNOWN INDICATION
     Route: 048

REACTIONS (5)
  - Hypertensive crisis [Recovered/Resolved]
  - Tremor [Recovered/Resolved]
  - Muscle spasms [Recovered/Resolved]
  - Hallucinations, mixed [Recovered/Resolved]
  - Anxiety [Recovered/Resolved]
